FAERS Safety Report 17702351 (Version 1)
Quarter: 2020Q2

REPORT INFORMATION
  Report Type: Spontaneous
  Country: US (occurrence: US)
  Receive Date: 20200423
  Receipt Date: 20200423
  Transmission Date: 20200714
  Serious: No
  Sender: FDA-Public Use
  Company Number: NVSC2020US105405

PATIENT
  Sex: Female

DRUGS (1)
  1. ZARXIO [Suspect]
     Active Substance: FILGRASTIM-SNDZ
     Indication: BREAST CANCER FEMALE
     Dosage: 300 MG, QD
     Route: 058

REACTIONS (4)
  - Product dose omission [Unknown]
  - Dry skin [Unknown]
  - Fatigue [Unknown]
  - Rash [Unknown]
